FAERS Safety Report 6861985-7 (Version None)
Quarter: 2010Q3

REPORT INFORMATION
  Report Type: 
  Country: None (occurrence: None)
  Receive Date: 20100721
  Receipt Date: 20100707
  Transmission Date: 20110219
  Serious: Yes (Hospitalization)
  Sender: FDA-Public Use
  Company Number: US-ELI_LILLY_AND_COMPANY-US201004002132

PATIENT
  Sex: Female

DRUGS (11)
  1. FORTEO [Suspect]
     Indication: OSTEOPOROSIS
     Dosage: 20 UG, DAILY (1/D)
     Dates: start: 20090806
  2. ASPIRIN [Concomitant]
     Dosage: 325 MG, DAILY (1/D)
  3. FUROSEMIDE [Concomitant]
     Dosage: 40 MG, DAILY (1/D)
     Dates: start: 20100301
  4. VITAMIN D [Concomitant]
     Dosage: 50000 U, WEEKLY (1/W)
     Dates: start: 20100301
  5. POTASSIUM CHLORIDE [Concomitant]
     Dosage: 20 MEQ, 2/D
  6. SYNTHROID [Concomitant]
     Dosage: 80 UG, DAILY (1/D)
     Dates: start: 19950101
  7. ZYRTEC [Concomitant]
     Dosage: 5 MG, AS NEEDED
  8. SIMVASTATIN [Concomitant]
     Dosage: 40 MG, UNK
     Dates: start: 20080101
  9. AMBIEN [Concomitant]
     Dates: start: 20080101
  10. LIPITOR [Concomitant]
     Dosage: 20 MG, DAILY (1/D)
  11. IRON [Concomitant]

REACTIONS (11)
  - ASTHENIA [None]
  - BLOOD PRESSURE DECREASED [None]
  - DEHYDRATION [None]
  - DIZZINESS [None]
  - FATIGUE [None]
  - GAIT DISTURBANCE [None]
  - GASTRITIS [None]
  - GASTROENTERITIS [None]
  - OESOPHAGEAL OBSTRUCTION [None]
  - OESOPHAGEAL ULCER [None]
  - PNEUMONIA ASPIRATION [None]
